FAERS Safety Report 13391813 (Version 3)
Quarter: 2017Q2

REPORT INFORMATION
  Report Type: Report from Study
  Country: None (occurrence: US)
  Receive Date: 20170331
  Receipt Date: 20170608
  Transmission Date: 20170830
  Serious: Yes (Other)
  Sender: FDA-Public Use
  Company Number: US-ABBVIE-17K-163-1925537-00

PATIENT
  Age: 58 Year
  Sex: Male

DRUGS (2)
  1. HUMIRA [Suspect]
     Active Substance: ADALIMUMAB
     Indication: PSORIASIS
  2. HUMIRA [Suspect]
     Active Substance: ADALIMUMAB
     Indication: PSORIATIC ARTHROPATHY
     Dosage: ONLY TOOK ONE TIME
     Route: 058
     Dates: start: 20170323, end: 20170323

REACTIONS (11)
  - Chest discomfort [Recovered/Resolved]
  - Cardiac discomfort [Recovered/Resolved]
  - Vision blurred [Recovered/Resolved]
  - Toothache [Recovered/Resolved]
  - Drug hypersensitivity [Recovered/Resolved]
  - Pain in jaw [Recovered/Resolved]
  - Butterfly rash [Recovered/Resolved]
  - Skin discolouration [Recovered/Resolved]
  - Dyspnoea [Recovered/Resolved]
  - Blindness [Not Recovered/Not Resolved]
  - Swelling face [Recovered/Resolved]

NARRATIVE: CASE EVENT DATE: 2017
